FAERS Safety Report 5928277-1 (Version None)
Quarter: 2008Q4

REPORT INFORMATION
  Report Type: 
  Country: None (occurrence: None)
  Receive Date: 20081023
  Receipt Date: 20081016
  Transmission Date: 20090506
  Serious: Yes (Hospitalization)
  Sender: FDA-Public Use
  Company Number: US-ASTRAZENECA-2008UW22932

PATIENT
  Age: 70 Year
  Sex: Female

DRUGS (11)
  1. ARIMIDEX [Suspect]
     Route: 048
     Dates: start: 20031001
  2. ZOLOFT [Concomitant]
  3. JANUVIA [Concomitant]
  4. ALTACE [Concomitant]
  5. TOPROL-XL [Concomitant]
  6. SIMVASTATIN [Concomitant]
  7. BONIVA [Concomitant]
  8. ASPIRIN [Concomitant]
  9. TRIFLEX [Concomitant]
  10. FISH OIL [Concomitant]
  11. ASCORBIC ACID [Concomitant]

REACTIONS (4)
  - ARTERIAL DISORDER [None]
  - ARTHRITIS [None]
  - RESORPTION BONE INCREASED [None]
  - TYPE 2 DIABETES MELLITUS [None]
